FAERS Safety Report 5427116-5 (Version None)
Quarter: 2007Q3

REPORT INFORMATION
  Report Type: 
  Country: None (occurrence: None)
  Receive Date: 20070824
  Receipt Date: 20070824
  Transmission Date: 20080115
  Serious: Yes (Hospitalization)
  Sender: FDA-Public Use
  Company Number: None

PATIENT
  Age: 51 Year
  Sex: Female

DRUGS (7)
  1. NATALIZUMAB 300MG BIOGEN/ELAN [Suspect]
     Indication: MULTIPLE SCLEROSIS
     Dosage: 300MG ONCE IV DRIP
     Route: 041
     Dates: start: 20070228, end: 20070228
  2. LYRICA [Concomitant]
  3. DETROL LA [Concomitant]
  4. AMITRIPTYLINE HCL [Concomitant]
  5. ACETAMINOPHEN AND HYDROCODONE BITARTRATE [Concomitant]
  6. ULTRAM [Concomitant]
  7. NAMENDA [Concomitant]

REACTIONS (2)
  - CHEST DISCOMFORT [None]
  - FLUSHING [None]
